FAERS Safety Report 6663539-4 (Version None)
Quarter: 2010Q2

REPORT INFORMATION
  Report Type: 
  Country: None (occurrence: None)
  Receive Date: 20100401
  Receipt Date: 20100325
  Transmission Date: 20101027
  Serious: Yes (Hospitalization)
  Sender: FDA-Public Use
  Company Number: JP-PFIZER INC-2010039408

PATIENT
  Age: 77 Year
  Sex: Female
  Weight: 42.5 kg

DRUGS (8)
  1. SUNITINIB MALATE [Suspect]
     Indication: RENAL CELL CARCINOMA
     Dosage: 50 MG, 1X/DAY
     Route: 048
     Dates: start: 20090421, end: 20090518
  2. FAMOTIDINE [Concomitant]
     Dosage: UNK
     Route: 048
  3. BEZATOL [Concomitant]
     Dosage: UNK
     Route: 048
  4. PLETAL [Concomitant]
     Dosage: UNK
     Route: 048
  5. MELOXICAM [Concomitant]
     Dosage: UNK
     Route: 048
  6. FERROUS CITRATE [Concomitant]
     Dosage: UNK
     Route: 048
  7. BIOFERMIN [Concomitant]
     Dosage: UNK
     Route: 048
  8. PROMAC /JPN/ [Concomitant]
     Dosage: UNK
     Route: 048

REACTIONS (1)
  - PLEURAL EFFUSION [None]
